FAERS Safety Report 19125767 (Version 4)
Quarter: 2021Q2

REPORT INFORMATION
  Report Type: Spontaneous
  Country: JP (occurrence: JP)
  Receive Date: 20210413
  Receipt Date: 20210614
  Transmission Date: 20210717
  Serious: Yes (Other)
  Sender: FDA-Public Use
  Company Number: JP-GLAXOSMITHKLINE-JP2021JPN078072

PATIENT
  Age: 35 Year
  Sex: Female

DRUGS (3)
  1. TRELEGY ELLIPTA [Suspect]
     Active Substance: FLUTICASONE FUROATE\UMECLIDINIUM BROMIDE\VILANTEROL TRIFENATATE
     Indication: ASTHMA
     Dosage: 100 ?G, QD, 1 INHALATION PER DOSE
     Route: 055
     Dates: start: 20201209, end: 20210119
  2. KIPRES [Concomitant]
     Active Substance: MONTELUKAST SODIUM
     Indication: ASTHMA
     Dosage: UNK, QD
     Dates: start: 20201209
  3. BILANOA [Concomitant]
     Active Substance: BILASTINE
     Indication: RHINITIS ALLERGIC
     Dosage: UNK, QD
     Dates: start: 20201209

REACTIONS (2)
  - Respiratory tract infection [Unknown]
  - Tonsillitis [Unknown]

NARRATIVE: CASE EVENT DATE: 20201218
